FAERS Safety Report 14513248 (Version 1)
Quarter: 2018Q1

REPORT INFORMATION
  Report Type: Spontaneous
  Country: US (occurrence: US)
  Receive Date: 20180209
  Receipt Date: 20180209
  Transmission Date: 20180509
  Serious: No
  Sender: FDA-Public Use
  Company Number: US-ALLERGAN-1722239US

PATIENT
  Age: 74 Year
  Sex: Female

DRUGS (3)
  1. GABAPENTIN. [Concomitant]
     Active Substance: GABAPENTIN
     Dosage: UNK
     Dates: start: 20170522
  2. RESTASIS [Suspect]
     Active Substance: CYCLOSPORINE
     Indication: DRY EYE
     Dosage: UNK
     Route: 047
     Dates: start: 2016
  3. RESTASIS [Suspect]
     Active Substance: CYCLOSPORINE
     Dosage: UNK
     Route: 047
     Dates: start: 20170520

REACTIONS (3)
  - Intentional dose omission [Unknown]
  - Eye swelling [Not Recovered/Not Resolved]
  - Eyelid oedema [Not Recovered/Not Resolved]

NARRATIVE: CASE EVENT DATE: 20170521
